FAERS Safety Report 9933612 (Version 1)
Quarter: 2014Q1

REPORT INFORMATION
  Report Type: Spontaneous
  Country: US (occurrence: US)
  Receive Date: 20140228
  Receipt Date: 20140228
  Transmission Date: 20141002
  Serious: No
  Sender: FDA-Public Use
  Company Number: US-ABBVIE-14P-163-1198617-00

PATIENT
  Sex: Male
  Weight: 115.77 kg

DRUGS (3)
  1. ANDROGEL [Suspect]
     Indication: BLOOD TESTOSTERONE DECREASED
     Dates: start: 2011
  2. CABERGOLINE [Concomitant]
     Indication: BLOOD PROLACTIN INCREASED
  3. RISPERDAL [Concomitant]
     Indication: PRODUCT USED FOR UNKNOWN INDICATION

REACTIONS (1)
  - Blood testosterone abnormal [Not Recovered/Not Resolved]
